FAERS Safety Report 21597087 (Version 1)
Quarter: 2022Q4

REPORT INFORMATION
  Report Type: Spontaneous
  Country: US (occurrence: US)
  Receive Date: 20221115
  Receipt Date: 20221115
  Transmission Date: 20230113
  Serious: Yes (Other)
  Sender: FDA-Public Use
  Company Number: US-AMNEAL PHARMACEUTICALS-2022-AMRX-00860

PATIENT
  Age: 30 Year
  Sex: Female

DRUGS (2)
  1. ISOTRETINOIN [Suspect]
     Active Substance: ISOTRETINOIN
     Indication: Product used for unknown indication
     Dosage: 30 MILLIGRAM CAPSULES
     Route: 048
  2. CLARAVIS [Suspect]
     Active Substance: ISOTRETINOIN
     Indication: Product used for unknown indication
     Dosage: 36 CAPSULES
     Route: 048

REACTIONS (1)
  - Idiopathic intracranial hypertension [Unknown]

NARRATIVE: CASE EVENT DATE: 20220324
